FAERS Safety Report 6968601-4 (Version None)
Quarter: 2010Q3

REPORT INFORMATION
  Report Type: 
  Country: None (occurrence: None)
  Receive Date: 20100907
  Receipt Date: 20100902
  Transmission Date: 20110219
  Serious: Yes (Death)
  Sender: FDA-Public Use
  Company Number: CO-ROCHE-724952

PATIENT
  Sex: Male

DRUGS (2)
  1. AVASTIN [Suspect]
     Route: 042
     Dates: start: 20090515, end: 20100419
  2. TARCEVA [Suspect]
     Route: 048
     Dates: start: 20100501, end: 20100704

REACTIONS (1)
  - DISEASE PROGRESSION [None]
